FAERS Safety Report 13987293 (Version 1)
Quarter: 2017Q3

REPORT INFORMATION
  Report Type: Spontaneous
  Country: RU (occurrence: RU)
  Receive Date: 20170919
  Receipt Date: 20170919
  Transmission Date: 20171128
  Serious: Yes (Other)
  Sender: FDA-Public Use
  Company Number: RU-ASTRAZENECA-2017SE94977

PATIENT
  Age: 80 Year
  Sex: Female
  Weight: 60 kg

DRUGS (7)
  1. BISOPROLOL [Concomitant]
     Active Substance: BISOPROLOL
  2. BRILINTA [Suspect]
     Active Substance: TICAGRELOR
     Indication: MYOCARDIAL INFARCTION
     Route: 048
     Dates: start: 201611
  3. THROMBO ASS [Concomitant]
     Active Substance: ASPIRIN
  4. AMLODIPINE [Concomitant]
     Active Substance: AMLODIPINE BESYLATE
  5. LORISTA [Concomitant]
     Active Substance: LOSARTAN POTASSIUM
  6. ATORVASTATIN [Concomitant]
     Active Substance: ATORVASTATIN
  7. HYPOTHIAZID [Concomitant]
     Active Substance: HYDROCHLOROTHIAZIDE

REACTIONS (2)
  - Tuberculosis [Not Recovered/Not Resolved]
  - Dyspnoea [Not Recovered/Not Resolved]
